FAERS Safety Report 8254748-1 (Version None)
Quarter: 2012Q2

REPORT INFORMATION
  Report Type: 
  Country: None (occurrence: None)
  Receive Date: 20120403
  Receipt Date: 20120323
  Transmission Date: 20120825
  Serious: Yes (Other)
  Sender: FDA-Public Use
  Company Number: PHHY2012ES025420

PATIENT
  Age: 77 Year
  Sex: Female

DRUGS (2)
  1. EXJADE [Suspect]
     Indication: IRON OVERLOAD
     Dosage: 1000 MG, DAILY
     Route: 048
     Dates: start: 20110711, end: 20120104
  2. LENALIDOMIDE [Concomitant]

REACTIONS (2)
  - MACULE [None]
  - PRURITUS GENERALISED [None]
